FAERS Safety Report 10145414 (Version 1)
Quarter: 2014Q2

REPORT INFORMATION
  Report Type: Spontaneous
  Country: US (occurrence: US)
  Receive Date: 20140501
  Receipt Date: 20140501
  Transmission Date: 20141212
  Serious: No
  Sender: FDA-Public Use
  Company Number: US-009507513-1404USA009971

PATIENT
  Age: 6 Month
  Sex: 0

DRUGS (1)
  1. NASONEX [Suspect]
     Indication: SLEEP APNOEA SYNDROME
     Route: 045

REACTIONS (4)
  - Drug administered to patient of inappropriate age [Unknown]
  - Off label use [Unknown]
  - Off label use [Unknown]
  - No adverse event [Unknown]
